FAERS Safety Report 4427085-0 (Version None)
Quarter: 2004Q3

REPORT INFORMATION
  Report Type: 
  Country: None (occurrence: None)
  Receive Date: 20040726
  Receipt Date: 20040401
  Transmission Date: 20050211
  Serious: No
  Sender: FDA-Public Use
  Company Number: USA031151435

PATIENT
  Age: 51 Year
  Sex: Female
  Weight: 93 kg

DRUGS (3)
  1. FORTEO [Suspect]
     Indication: OSTEOPOROSIS
     Dosage: 20 UG DAY
     Dates: start: 20031001
  2. MESTINON [Concomitant]
  3. PREDNISONE [Concomitant]

REACTIONS (3)
  - HEART RATE DECREASED [None]
  - INJECTION SITE HAEMORRHAGE [None]
  - NERVOUSNESS [None]
